FAERS Safety Report 5288955-7 (Version None)
Quarter: 2007Q2

REPORT INFORMATION
  Report Type: 
  Country: None (occurrence: None)
  Receive Date: 20070405
  Receipt Date: 20070402
  Transmission Date: 20071010
  Serious: Yes (Other)
  Sender: FDA-Public Use
  Company Number: US-PFIZER INC-2007000726

PATIENT
  Sex: Male
  Weight: 108 kg

DRUGS (2)
  1. CELEBREX [Suspect]
     Indication: BACK PAIN
  2. CELEBREX [Suspect]
     Indication: ARTHRALGIA

REACTIONS (6)
  - ANXIETY [None]
  - ARTERIOSCLEROSIS [None]
  - BLOOD CHOLESTEROL INCREASED [None]
  - CARDIOVASCULAR DISORDER [None]
  - DEPRESSION [None]
  - MYOCARDIAL INFARCTION [None]
